FAERS Safety Report 4988664-5 (Version None)
Quarter: 2006Q2

REPORT INFORMATION
  Report Type: 
  Country: None (occurrence: None)
  Receive Date: 20060502
  Receipt Date: 20050706
  Transmission Date: 20061013
  Serious: Yes (Hospitalization, Other)
  Sender: FDA-Public Use
  Company Number: US-MERCK-0507USA00902

PATIENT
  Age: 57 Year
  Sex: Female

DRUGS (10)
  1. ETODOLAC [Concomitant]
     Route: 065
  2. VIOXX [Suspect]
     Indication: ARTHRITIS
     Route: 048
     Dates: start: 19990101, end: 20040101
  3. LIPITOR [Concomitant]
     Route: 065
  4. POTASSIUM CHLORIDE [Concomitant]
     Route: 065
  5. METFORMIN [Concomitant]
     Route: 065
  6. ATENOLOL [Concomitant]
     Route: 065
  7. ZETIA [Concomitant]
     Route: 065
  8. ZOLOFT [Concomitant]
     Route: 065
  9. NORVASC [Concomitant]
     Route: 065
  10. LISINOPRIL [Concomitant]
     Route: 065

REACTIONS (6)
  - ARTHROPATHY [None]
  - BREAST DISORDER FEMALE [None]
  - CEREBROVASCULAR ACCIDENT [None]
  - HAEMORRHOIDS [None]
  - INJURY [None]
  - MYOCARDIAL INFARCTION [None]
